FAERS Safety Report 7592700-X (Version None)
Quarter: 2011Q3

REPORT INFORMATION
  Report Type: 
  Country: None (occurrence: None)
  Receive Date: 20110706
  Receipt Date: 20110630
  Transmission Date: 20111222
  Serious: Yes (Disabling, Other)
  Sender: FDA-Public Use
  Company Number: US-PFIZER INC-2011051686

PATIENT
  Sex: Female

DRUGS (1)
  1. CHANTIX [Suspect]
     Indication: SMOKING CESSATION THERAPY
     Dosage: STARTER PACK
     Dates: start: 20090101, end: 20090201

REACTIONS (5)
  - INSOMNIA [None]
  - DEPRESSION [None]
  - OCHLOPHOBIA [None]
  - NIGHTMARE [None]
  - CLAUSTROPHOBIA [None]
